FAERS Safety Report 14964990 (Version 1)
Quarter: 2018Q2

REPORT INFORMATION
  Report Type: Report from Study
  Country: None (occurrence: FR)
  Receive Date: 20180601
  Receipt Date: 20180601
  Transmission Date: 20180711
  Serious: No
  Sender: FDA-Public Use
  Company Number: FR-BIOVERATIV-2018BV000325

PATIENT

DRUGS (1)
  1. ELOCTA [Suspect]
     Active Substance: EFMOROCTOCOG ALFA
     Indication: PRODUCT USED FOR UNKNOWN INDICATION
     Route: 065

REACTIONS (2)
  - Pain [Unknown]
  - Poor venous access [Unknown]
